FAERS Safety Report 8596828-7 (Version None)
Quarter: 2012Q3

REPORT INFORMATION
  Report Type: 
  Country: None (occurrence: None)
  Receive Date: 20120815
  Receipt Date: 20120813
  Transmission Date: 20120928
  Serious: Yes (Death, Hospitalization, Other)
  Sender: FDA-Public Use
  Company Number: BR-PFIZER INC-2012198165

PATIENT
  Age: 97 Year
  Sex: Female

DRUGS (9)
  1. OMEPRAZOLE [Concomitant]
     Indication: GASTRITIS
     Dosage: 1 DF (1 TABLET), 1X/DAY
  2. LEVOTHYROXINE SODIUM [Concomitant]
     Indication: THYROID DISORDER
     Dosage: 1 DF (1 TABLET), 1X/DAY
  3. LATANOPROST [Suspect]
     Indication: INTRAOCULAR PRESSURE TEST ABNORMAL
     Dosage: 1.5 UG (ONE DROP), 1X/DAY
     Route: 047
     Dates: start: 20110101
  4. ALDACTONE [Suspect]
     Indication: HYPERTENSION
     Dosage: 1 DF (1 TABLET), 1X/DAY
     Route: 048
  5. FUROSEMIDE [Concomitant]
     Indication: FLUID RETENTION
     Dosage: 1 DF (1 TABLET), 2X/DAY
  6. ISOSORBIDE MONONITRATE [Concomitant]
     Indication: TACHYCARDIA
     Dosage: 1 DF (1 TABLET), 2X/DAY
  7. CLONAZEPAM [Concomitant]
     Indication: SLEEP DISORDER
     Dosage: 1 DF (1 TABLET), AS NEEDED
  8. CITROL [Concomitant]
     Indication: RESTLESS LEGS SYNDROME
     Dosage: 1 DF (1 TABLET), 1X/DAY
  9. DIOVAN [Concomitant]
     Dosage: 1 DF (1 TABLET), 1X/DAY

REACTIONS (2)
  - DEATH [None]
  - PNEUMONIA [None]
